FAERS Safety Report 4785598-6 (Version None)
Quarter: 2005Q3

REPORT INFORMATION
  Report Type: 
  Country: None (occurrence: None)
  Receive Date: 20050929
  Receipt Date: 20050920
  Transmission Date: 20060218
  Serious: Yes (Death, Life-Threatening, Hospitalization, Disabling)
  Sender: FDA-Public Use
  Company Number: HQ7733029OCT2001

PATIENT
  Age: 50 Year
  Sex: Female
  Weight: 76.3 kg

DRUGS (18)
  1. MYLOTARG [Suspect]
     Indication: ACUTE MYELOID LEUKAEMIA
     Dosage: 7.3 MG ONE TIME PER ONE DOSE, INTRAVENOUS
     Route: 042
     Dates: start: 20011016, end: 20011016
  2. CYCLOSPORINE [Concomitant]
  3. FLUCONAZOLE [Concomitant]
  4. ACYCLOVIR [Concomitant]
  5. K-PHOS (POTASSIUM PHOSPHATE MONOBASIC) [Concomitant]
  6. PREDNISONE [Concomitant]
  7. KLONOPIN [Concomitant]
  8. CALCIUM WITH VITAMIN D (CALCIUM PHOSPHATE/CALCIUM SODIUM LACTATE/ERGOC [Concomitant]
  9. MULTIVIT (VITAMINS NOS) [Concomitant]
  10. CELEXA [Concomitant]
  11. SYNTHROID [Concomitant]
  12. RITALIN [Concomitant]
  13. REGLAN [Concomitant]
  14. CEFTAZIDIME SODIUM [Concomitant]
  15. LANSOPRAZOLE [Concomitant]
  16. NORVASC [Concomitant]
  17. NPH INSULIN [Suspect]
  18. INSULIN [Concomitant]

REACTIONS (14)
  - ACUTE MYELOID LEUKAEMIA [None]
  - ACUTE MYELOID LEUKAEMIA RECURRENT [None]
  - ASPERGILLOSIS [None]
  - FEBRILE NEUTROPENIA [None]
  - GASTROINTESTINAL HAEMORRHAGE [None]
  - GRAFT VERSUS HOST DISEASE [None]
  - PAIN [None]
  - PANCYTOPENIA [None]
  - PLEURAL EFFUSION [None]
  - PULMONARY OEDEMA [None]
  - RENAL FAILURE ACUTE [None]
  - SEPSIS [None]
  - SOMNOLENCE [None]
  - VENOOCCLUSIVE LIVER DISEASE [None]
